FAERS Safety Report 7867281-3 (Version None)
Quarter: 2011Q4

REPORT INFORMATION
  Report Type: 
  Country: None (occurrence: None)
  Receive Date: 20111028
  Receipt Date: 20111024
  Transmission Date: 20120403
  Serious: Yes (Death, Hospitalization)
  Sender: FDA-Public Use
  Company Number: PHHY2011BR94745

PATIENT
  Age: 32 Year
  Sex: Female

DRUGS (3)
  1. METHOTREXATE [Suspect]
     Indication: BREAST CANCER
     Dosage: UNK
  2. CYCLOPHOSPHAMIDE [Suspect]
     Indication: BREAST CANCER
     Dosage: UNK
  3. LEUCOVORIN CALCIUM [Suspect]
     Indication: BREAST CANCER
     Dosage: UNK

REACTIONS (3)
  - SEPSIS [None]
  - HAEMODYNAMIC INSTABILITY [None]
  - FEBRILE NEUTROPENIA [None]
